FAERS Safety Report 8342801-3 (Version None)
Quarter: 2012Q2

REPORT INFORMATION
  Report Type: 
  Country: None (occurrence: None)
  Receive Date: 20120503
  Receipt Date: 20120423
  Transmission Date: 20120825
  Serious: Yes (Hospitalization)
  Sender: FDA-Public Use
  Company Number: 2012MA001421

PATIENT
  Age: 56 Year
  Sex: Male

DRUGS (5)
  1. DIAZEPAM [Suspect]
     Indication: DELIRIUM TREMENS
     Dosage: 100 MG, PO
     Route: 048
     Dates: start: 20120103, end: 20120109
  2. THIAMINE HCL [Concomitant]
  3. B-COMBIN STAERK [Concomitant]
  4. CHLORDIAZEPOXIDE [Suspect]
     Indication: DELIRIUM TREMENS
     Dosage: 900 MG, PO
     Route: 048
     Dates: start: 20120103, end: 20120109
  5. HALOPERIDOL LACTATE [Suspect]
     Indication: DELIRIUM TREMENS
     Dosage: 20 MG, IV
     Route: 042
     Dates: start: 20120103, end: 20120109

REACTIONS (4)
  - RESPIRATORY FAILURE [None]
  - PNEUMONIA HAEMOPHILUS [None]
  - RESPIRATORY ACIDOSIS [None]
  - HYPERCAPNIA [None]
